FAERS Safety Report 8480787-1 (Version None)
Quarter: 2012Q2

REPORT INFORMATION
  Report Type: 
  Country: None (occurrence: None)
  Receive Date: 20120625
  Receipt Date: 20120611
  Transmission Date: 20120825
  Serious: Yes (Other)
  Sender: FDA-Public Use
  Company Number: 2012P1040966

PATIENT
  Age: 80 Year
  Sex: Female

DRUGS (1)
  1. CHLORPROMAZINE [Suspect]
     Indication: PAIN
     Dosage: 37.5 MG;X1; RETRO

REACTIONS (9)
  - EYE PAIN [None]
  - CORNEAL OEDEMA [None]
  - LAGOPHTHALMOS [None]
  - CONJUNCTIVAL HYPERAEMIA [None]
  - CORNEAL NEOVASCULARISATION [None]
  - KERATOPATHY [None]
  - CONJUNCTIVAL OEDEMA [None]
  - EYELID OEDEMA [None]
  - ERYTHEMA [None]
